FAERS Safety Report 19610693 (Version 1)
Quarter: 2021Q3

REPORT INFORMATION
  Report Type: Spontaneous
  Country: IN (occurrence: IN)
  Receive Date: 20210726
  Receipt Date: 20210726
  Transmission Date: 20211014
  Serious: Yes (Death, Hospitalization, Other)
  Sender: FDA-Public Use
  Company Number: IN-UNIQUE PHARMACEUTICAL LABORATORIES-20210700055

PATIENT
  Age: 52 Year
  Sex: Male

DRUGS (5)
  1. FLUCONAZOLE UNSPECIFIED [Suspect]
     Active Substance: FLUCONAZOLE
     Indication: INTERVERTEBRAL DISCITIS
     Dosage: 800 MG/DAY FOR A PERIOD OF 2 WEEKS.
     Route: 042
  2. AMPHOTERICIN B DEOXYCHOLATE [Interacting]
     Active Substance: AMPHOTERICIN B
     Dosage: 1 MG/KG
     Route: 042
  3. FLUCONAZOLE UNSPECIFIED [Interacting]
     Active Substance: FLUCONAZOLE
     Dosage: 400 MG/DAY
     Route: 048
  4. WARFARIN [Interacting]
     Active Substance: WARFARIN
     Indication: THROMBOSIS PROPHYLAXIS
  5. FLUCONAZOLE UNSPECIFIED [Interacting]
     Active Substance: FLUCONAZOLE
     Dosage: UNKNOWN DOSE
     Route: 042

REACTIONS (3)
  - Coagulopathy [Fatal]
  - Drug interaction [Fatal]
  - Septic shock [Fatal]
